FAERS Safety Report 12664846 (Version 1)
Quarter: 2016Q3

REPORT INFORMATION
  Report Type: Report from Study
  Country: DK (occurrence: DK)
  Receive Date: 20160818
  Receipt Date: 20160818
  Transmission Date: 20161109
  Serious: Yes (Other)
  Sender: FDA-Public Use
  Company Number: DK-PFIZER INC-2016388858

PATIENT
  Sex: Male

DRUGS (1)
  1. LIDOCAINE HCL [Suspect]
     Active Substance: LIDOCAINE HYDROCHLORIDE
     Dosage: 8 MG, PER MINUTE
     Route: 042

REACTIONS (4)
  - Speech disorder [Recovered/Resolved]
  - Medication error [Unknown]
  - Psychotic disorder [Recovered/Resolved]
  - Diplopia [Recovered/Resolved]
